FAERS Safety Report 5249198-6 (Version None)
Quarter: 2007Q1

REPORT INFORMATION
  Report Type: 
  Country: None (occurrence: None)
  Receive Date: 20070228
  Receipt Date: 20070221
  Transmission Date: 20070707
  Serious: Yes (Other)
  Sender: FDA-Public Use
  Company Number: US-JNJFOC-20061205242

PATIENT
  Age: 49 Year
  Sex: Male

DRUGS (1)
  1. MOTRIN [Suspect]
     Indication: BACK DISORDER

REACTIONS (2)
  - OPTIC ATROPHY [None]
  - OPTIC NEUROPATHY [None]
